FAERS Safety Report 5512134-9 (Version None)
Quarter: 2007Q4

REPORT INFORMATION
  Report Type: 
  Country: None (occurrence: None)
  Receive Date: 20071112
  Receipt Date: 20071105
  Transmission Date: 20080405
  Serious: Yes (Hospitalization)
  Sender: FDA-Public Use
  Company Number: US-SHR-US-2007-007417

PATIENT
  Age: 68 Year
  Sex: Male
  Weight: 81.633 kg

DRUGS (19)
  1. BETASERON [Suspect]
     Dosage: 8 MIU, EVERY 2D
     Route: 058
     Dates: start: 19990210
  2. PROVIGIL [Concomitant]
     Dosage: 200 MG, 2X/DAY
  3. PAXIL [Concomitant]
     Dosage: 40 M, 1X/DAY
  4. URECHOLINE [Concomitant]
     Dosage: 25 MG, 2, 4X/DAY
  5. PRILOSEC [Concomitant]
     Dosage: 20 MG, 1X/DAY
  6. PLAVIX [Concomitant]
     Dosage: 75 MG, 1X/DAY
  7. LASIX [Concomitant]
     Dosage: 20 MG, 1X/DAY
  8. ASPIRIN [Concomitant]
     Dosage: 325 MG/D, UNK
  9. CALCITRATE [Concomitant]
     Dosage: 600 D, 2X/DAY
  10. MULTIVIT [Concomitant]
     Dosage: UNK, 1X/DAY
  11. ZESTRIL [Concomitant]
     Dosage: 10 MG, 1X/DAY
  12. ZOCOR [Concomitant]
     Dosage: 80 MG, 1X/DAY
  13. FLOMAX [Concomitant]
     Dosage: .4 MG, 1X/DAY
  14. STOOL SOFTENER [Concomitant]
     Dosage: 100 UNK, 2X/DAY
  15. TYLENOL (CAPLET) [Concomitant]
     Dosage: 650,2, AS REQ'D
  16. DARVOCET [Concomitant]
     Dosage: 1 UNK, AS REQ'D
  17. LIDOCAINE [Concomitant]
  18. ENULOSE [Concomitant]
     Dosage: UNK, 1X/DAY
  19. CORTICOSTEROID NOS [Concomitant]
     Dates: start: 20010101, end: 20060101

REACTIONS (3)
  - CEREBROVASCULAR ACCIDENT [None]
  - INJECTION SITE PAIN [None]
  - MOBILITY DECREASED [None]
